FAERS Safety Report 4572182-2 (Version None)
Quarter: 2005Q1

REPORT INFORMATION
  Report Type: 
  Country: None (occurrence: None)
  Receive Date: 20050202
  Receipt Date: 20050119
  Transmission Date: 20050727
  Serious: Yes (Death)
  Sender: FDA-Public Use
  Company Number: CEL-2004-01548-ROC

PATIENT
  Age: 53 Year
  Sex: Male

DRUGS (13)
  1. ZAROXOLYN [Suspect]
     Indication: FLUID RETENTION
     Dosage: FREQUENCY, AND ROUTE
     Dates: end: 20040623
  2. MICARDIS [Suspect]
     Dates: start: 20030926, end: 20040620
  3. COZAAR [Concomitant]
     Dates: start: 20030926, end: 20040620
  4. NOVOLIN 85/15 [Suspect]
     Indication: DIABETES MELLITUS
  5. HUMALOG [Suspect]
     Indication: DIABETES MELLITUS
  6. FUROSEMIDE                (FUROSEMIDE) [Suspect]
     Indication: HYPERTENSION
     Dates: end: 20040620
  7. ZOLOFT [Suspect]
     Indication: DEPRESSION
  8. PLAVIX [Suspect]
     Dosage: PREVENT THROMBOSIS
  9. TOPROL-XL [Concomitant]
  10. ISOSORBIDE (ISOSORBIDE) [Concomitant]
  11. SODIUM BICARBONATE IN PLASTIC CONTAINER [Concomitant]
  12. NEURONTIN [Concomitant]
  13. STADOL [Concomitant]

REACTIONS (18)
  - ANAEMIA [None]
  - ANOXIC ENCEPHALOPATHY [None]
  - ASPIRATION [None]
  - BRADYARRHYTHMIA [None]
  - CARDIAC ARREST [None]
  - CARDIAC FAILURE CONGESTIVE [None]
  - FAECAL OCCULT BLOOD POSITIVE [None]
  - GASTRITIS [None]
  - GRAFT THROMBOSIS [None]
  - HYPOCALCAEMIA [None]
  - METABOLIC ACIDOSIS [None]
  - PNEUMONIA [None]
  - PSEUDOMONAS INFECTION [None]
  - RENAL FAILURE CHRONIC [None]
  - RESPIRATORY FAILURE [None]
  - SEPSIS [None]
  - STAPHYLOCOCCAL INFECTION [None]
  - THERAPY NON-RESPONDER [None]
